FAERS Safety Report 4967409-9 (Version None)
Quarter: 2006Q2

REPORT INFORMATION
  Report Type: 
  Country: None (occurrence: None)
  Receive Date: 20060407
  Receipt Date: 20060407
  Transmission Date: 20061013
  Serious: Yes (Other)
  Sender: FDA-Public Use
  Company Number: None

PATIENT
  Age: 16 Year
  Sex: Female
  Weight: 65.7716 kg

DRUGS (2)
  1. RITALIN [Suspect]
     Indication: OPPOSITIONAL DEFIANT DISORDER
     Dosage: 10 MILLIGRAMS DAILY PO
     Route: 048
     Dates: start: 20060314, end: 20060320
  2. CONCERTA [Suspect]
     Indication: ATTENTION DEFICIT/HYPERACTIVITY DISORDER
     Dosage: 72 MILLIGRAMS DAILY PO
     Route: 048
     Dates: start: 20060314, end: 20060320

REACTIONS (4)
  - AGGRESSION [None]
  - ATTENTION DEFICIT/HYPERACTIVITY DISORDER [None]
  - IMPULSE-CONTROL DISORDER [None]
  - IRRITABILITY [None]
